FAERS Safety Report 16059376 (Version 1)
Quarter: 2019Q1

REPORT INFORMATION
  Report Type: Spontaneous
  Country: NL (occurrence: NL)
  Receive Date: 20190311
  Receipt Date: 20190311
  Transmission Date: 20190418
  Serious: Yes (Death)
  Sender: FDA-Public Use
  Company Number: NL-WHANIN PHARM. CO., LTD.-2019M1023058

PATIENT
  Age: 30 Year
  Sex: Male
  Weight: 115 kg

DRUGS (2)
  1. CLOZAPINE. [Suspect]
     Active Substance: CLOZAPINE
     Indication: OBSESSIVE-COMPULSIVE DISORDER
     Dosage: 100 MILLIGRAM, QD
     Route: 048
     Dates: start: 20180622
  2. CLOZAPINE. [Suspect]
     Active Substance: CLOZAPINE
     Indication: PSYCHOTIC DISORDER

REACTIONS (3)
  - Fatigue [Unknown]
  - Product use in unapproved indication [Unknown]
  - Sudden cardiac death [Fatal]

NARRATIVE: CASE EVENT DATE: 20180622
